FAERS Safety Report 8117656-2 (Version None)
Quarter: 2012Q1

REPORT INFORMATION
  Report Type: 
  Country: None (occurrence: None)
  Receive Date: 20120203
  Receipt Date: 20120203
  Transmission Date: 20120608
  Serious: Yes (Other)
  Sender: FDA-Public Use
  Company Number: None

PATIENT
  Sex: Male

DRUGS (2)
  1. IMIPRAMINE [Suspect]
     Indication: DEPRESSION
     Dosage: 150 MG QD PO
     Route: 048
     Dates: start: 20111212
  2. SERTRALINE HYDROCHLORIDE [Suspect]
     Indication: DEPRESSION
     Dosage: 150 MG QD PO
     Route: 048
     Dates: start: 20111212

REACTIONS (1)
  - TREMOR [None]
